FAERS Safety Report 20478210 (Version 1)
Quarter: 2022Q1

REPORT INFORMATION
  Report Type: Spontaneous
  Country: US (occurrence: US)
  Receive Date: 20220216
  Receipt Date: 20220216
  Transmission Date: 20220423
  Serious: Yes (Hospitalization, Other)
  Sender: FDA-Public Use
  Company Number: US-HETERO-HET2022US00384

PATIENT

DRUGS (8)
  1. RITONAVIR [Suspect]
     Active Substance: RITONAVIR
     Indication: COVID-19
     Dosage: 2X/DAY, BID
     Route: 048
     Dates: start: 20220131
  2. METHOTREXATE [Concomitant]
     Active Substance: METHOTREXATE
     Indication: Product used for unknown indication
     Dosage: 6 DOSES
     Route: 037
     Dates: start: 20220124, end: 20220125
  3. VINCRISTINE [Concomitant]
     Active Substance: VINCRISTINE
     Indication: Product used for unknown indication
     Dosage: UNK
     Route: 042
     Dates: start: 20220124, end: 20220124
  4. MERCAPTOPURINE [Concomitant]
     Active Substance: MERCAPTOPURINE
     Indication: Product used for unknown indication
     Dosage: UNK
     Route: 065
     Dates: start: 20220124, end: 20220203
  5. ONDANSETRON [Concomitant]
     Active Substance: ONDANSETRON
     Indication: Product used for unknown indication
     Dosage: UNK
     Route: 065
     Dates: start: 20220124, end: 20220203
  6. CEFTRIAXONE [Concomitant]
     Active Substance: CEFTRIAXONE
     Indication: Product used for unknown indication
     Dosage: UNK
     Route: 065
     Dates: start: 20220125, end: 20220126
  7. OXYCODONE [Concomitant]
     Active Substance: OXYCODONE
     Indication: Product used for unknown indication
     Dosage: UNK
     Route: 065
     Dates: start: 20220124, end: 20220125
  8. ACETAMINOPHEN [Concomitant]
     Active Substance: ACETAMINOPHEN
     Indication: Product used for unknown indication
     Dosage: UNK
     Route: 065
     Dates: start: 20220124, end: 20220126

REACTIONS (23)
  - Muscle twitching [Unknown]
  - Dysarthria [Recovering/Resolving]
  - Facial paresis [Unknown]
  - Cerebrovascular accident [Unknown]
  - Posterior reversible encephalopathy syndrome [Unknown]
  - Facial paralysis [Recovering/Resolving]
  - Hemiparesis [Unknown]
  - Paraesthesia [Unknown]
  - Liver function test increased [Unknown]
  - Drug clearance decreased [Unknown]
  - Headache [Recovering/Resolving]
  - Nasal congestion [Unknown]
  - Dysphagia [Unknown]
  - Grip strength decreased [Recovering/Resolving]
  - Dyskinesia [Unknown]
  - Tongue disorder [Unknown]
  - Dysphonia [Unknown]
  - Muscle disorder [Unknown]
  - Weight decreased [Unknown]
  - Nausea [Recovering/Resolving]
  - Vomiting [Recovering/Resolving]
  - Decreased appetite [Unknown]
  - Hypoaesthesia [Recovered/Resolved]

NARRATIVE: CASE EVENT DATE: 20220101
